FAERS Safety Report 11540630 (Version 1)
Quarter: 2015Q3

REPORT INFORMATION
  Report Type: Spontaneous
  Country: US (occurrence: US)
  Receive Date: 20150923
  Receipt Date: 20150923
  Transmission Date: 20151125
  Serious: No
  Sender: FDA-Public Use
  Company Number: US-BEH-2015051463

PATIENT
  Age: 44 Year
  Sex: Female

DRUGS (1)
  1. PRIVIGEN [Suspect]
     Active Substance: HUMAN IMMUNOGLOBULIN G
     Route: 042
     Dates: start: 20150526

REACTIONS (9)
  - Flushing [Unknown]
  - Tenderness [Unknown]
  - Administration site extravasation [Unknown]
  - Erythema [Unknown]
  - Oedema [Unknown]
  - Discomfort [Unknown]
  - Administration site swelling [Unknown]
  - Application site irritation [Unknown]
  - Drug administration error [Unknown]

NARRATIVE: CASE EVENT DATE: 20150526
